FAERS Safety Report 6447503-6 (Version None)
Quarter: 2009Q4

REPORT INFORMATION
  Report Type: 
  Country: None (occurrence: None)
  Receive Date: 20091119
  Receipt Date: 20090211
  Transmission Date: 20100525
  Serious: Yes (Other)
  Sender: FDA-Public Use
  Company Number: US-AMGEN-KDL311078

PATIENT
  Sex: Female
  Weight: 99.4 kg

DRUGS (7)
  1. ENBREL [Suspect]
     Indication: PSORIATIC ARTHROPATHY
     Route: 058
     Dates: start: 20050101
  2. SYNTHROID [Concomitant]
  3. TRIAMTERENE AND HYDROCHLOROTHIAZIDE [Concomitant]
  4. ZOCOR [Concomitant]
  5. ZETIA [Concomitant]
  6. FLONASE [Concomitant]
  7. UNSPECIFIED TOPICAL PRODUCT [Concomitant]

REACTIONS (13)
  - BASAL CELL CARCINOMA [None]
  - BRONCHITIS [None]
  - COUGH [None]
  - DIABETES MELLITUS [None]
  - DIARRHOEA [None]
  - GASTROINTESTINAL DISORDER [None]
  - INCREASED TENDENCY TO BRUISE [None]
  - JOINT INJURY [None]
  - OSTEOARTHRITIS [None]
  - PSORIASIS [None]
  - PSORIATIC ARTHROPATHY [None]
  - SYNOVIAL CYST [None]
  - TOOTH DISORDER [None]
